FAERS Safety Report 20857608 (Version 1)
Quarter: 2022Q2

REPORT INFORMATION
  Report Type: Spontaneous
  Country: US (occurrence: US)
  Receive Date: 20220521
  Receipt Date: 20220521
  Transmission Date: 20220721
  Serious: No
  Sender: FDA-Public Use
  Company Number: US-Accord-229774

PATIENT
  Sex: Female

DRUGS (1)
  1. METHOTREXATE [Suspect]
     Active Substance: METHOTREXATE
     Indication: Product used for unknown indication
     Dosage: PER WEEK, INTRAMUSCULAR AS DIRECTED, VIALS 50 MG/2 ML - 2 ML SINGLE DOSE VIAL
     Route: 030
     Dates: start: 202105

REACTIONS (1)
  - Wrong technique in product usage process [Unknown]
